FAERS Safety Report 23107706 (Version 1)
Quarter: 2023Q4

REPORT INFORMATION
  Report Type: Spontaneous
  Country: TW (occurrence: TW)
  Receive Date: 20231026
  Receipt Date: 20231026
  Transmission Date: 20240110
  Serious: Yes (Other)
  Sender: FDA-Public Use
  Company Number: TW-PFIZER INC-PV202300172824

PATIENT
  Age: 72 Year
  Sex: Male

DRUGS (2)
  1. ENBREL [Suspect]
     Active Substance: ETANERCEPT
     Indication: Rheumatoid arthritis
     Dosage: 25 MG, 2X/WEEK
     Route: 058
     Dates: start: 20130424
  2. ENBREL [Suspect]
     Active Substance: ETANERCEPT
     Dosage: 25 MG, WEEKLY
     Route: 058
     Dates: end: 20231018

REACTIONS (2)
  - Prostate cancer [Not Recovered/Not Resolved]
  - Off label use [Unknown]
